FAERS Safety Report 15879802 (Version 2)
Quarter: 2019Q2

REPORT INFORMATION
  Report Type: Spontaneous
  Country: JP (occurrence: JP)
  Receive Date: 20190128
  Receipt Date: 20190405
  Transmission Date: 20190711
  Serious: Yes (Hospitalization)
  Sender: FDA-Public Use
  Company Number: JP-ACTELION-A-CH2019-185138

PATIENT
  Age: 19 Year
  Sex: Female

DRUGS (1)
  1. EPOPROSTENOL SODIUM. [Suspect]
     Active Substance: EPOPROSTENOL SODIUM
     Indication: PULMONARY ARTERIAL HYPERTENSION
     Route: 042

REACTIONS (6)
  - Thyroxine free increased [Recovering/Resolving]
  - Anti-thyroid antibody positive [Recovering/Resolving]
  - Goitre [Recovering/Resolving]
  - Tri-iodothyronine increased [Recovering/Resolving]
  - Treatment noncompliance [Unknown]
  - Basedow^s disease [Recovering/Resolving]
